FAERS Safety Report 5930771-4 (Version None)
Quarter: 2008Q4

REPORT INFORMATION
  Report Type: 
  Country: None (occurrence: None)
  Receive Date: 20081027
  Receipt Date: 20081015
  Transmission Date: 20090506
  Serious: Yes (Other)
  Sender: FDA-Public Use
  Company Number: US-SOLVAY-00208005043

PATIENT
  Age: 32 Year
  Sex: Female

DRUGS (7)
  1. PROGESTERONE [Suspect]
     Indication: IN VITRO FERTILISATION
     Dosage: DAILY DOSE: 600 MILLIGRAM(S)
     Route: 067
  2. PROGESTERONE [Suspect]
     Dosage: DAILY DOSE: 400 MILLIGRAM(S)
     Route: 067
  3. FOLLICLE STIMULATING HORMONE [Suspect]
     Indication: IN VITRO FERTILISATION
     Dosage: DAILY DOSE: 75 INTERNATIONAL UNIT(S)
     Route: 065
  4. ASPIRIN [Suspect]
     Indication: IN VITRO FERTILISATION
     Dosage: DAILY DOSE:  UNKNOWN
     Route: 065
  5. METFORMIN HYDROCHLORIDE [Suspect]
     Indication: INSULIN RESISTANCE
     Dosage: DAILY DOSE:  UNKNOWN
     Route: 065
  6. LEUPROLIDE ACETATE [Suspect]
     Indication: IN VITRO FERTILISATION
     Dosage: DAILY DOSE:  UNKNOWN
     Route: 065
  7. HUMAN CHORIONIC GONADOTROPIN (HCG) [Suspect]
     Indication: DRUG USE FOR UNKNOWN INDICATION
     Dosage: DAILY DOSE:  UNKNOWN
     Route: 065

REACTIONS (3)
  - CHOLESTASIS [None]
  - DRUG ADMINISTERED AT INAPPROPRIATE SITE [None]
  - OVARIAN HYPERSTIMULATION SYNDROME [None]
